FAERS Safety Report 6972546-3 (Version None)
Quarter: 2010Q3

REPORT INFORMATION
  Report Type: 
  Country: None (occurrence: None)
  Receive Date: 20100907
  Receipt Date: 20100823
  Transmission Date: 20110219
  Serious: Yes (Hospitalization)
  Sender: FDA-Public Use
  Company Number: 017643

PATIENT
  Sex: Male

DRUGS (2)
  1. CIMZIA [Suspect]
     Indication: RHEUMATOID ARTHRITIS
     Dosage: (200 MG 1X/2 WEEKS SUBCUTANEOUS)
     Route: 058
     Dates: start: 20100203
  2. CORTISONE ACETATE [Concomitant]

REACTIONS (3)
  - GASTRIC DISORDER [None]
  - GASTRIC HAEMORRHAGE [None]
  - HAEMOPTYSIS [None]
